FAERS Safety Report 17071006 (Version 1)
Quarter: 2019Q4

REPORT INFORMATION
  Report Type: Spontaneous
  Country: US (occurrence: US)
  Receive Date: 20191025
  Receipt Date: 20191025
  Transmission Date: 20200122
  Serious: No
  Sender: FDA-Public Use
  Company Number: None

PATIENT
  Age: 62 Year
  Sex: Female

DRUGS (1)
  1. GLATIRAMER ACETATE (12X1ML) 40MG/ML MYLAN [Suspect]
     Active Substance: GLATIRAMER ACETATE
     Indication: MULTIPLE SCLEROSIS
     Route: 058
     Dates: start: 20190619

REACTIONS (8)
  - Product quality issue [None]
  - Nausea [None]
  - Back pain [None]
  - Blood pressure decreased [None]
  - Flushing [None]
  - Pain in extremity [None]
  - Headache [None]
  - Heart rate decreased [None]

NARRATIVE: CASE EVENT DATE: 20191021
